FAERS Safety Report 8155150 (Version 3)
Quarter: 2013Q1

REPORT INFORMATION
  Report Type: Spontaneous
  Country: US (occurrence: US)
  Receive Date: 20110926
  Receipt Date: 20130308
  Transmission Date: 20140127
  Serious: Yes (Death, Hospitalization, Other)
  Sender: FDA-Public Use
  Company Number: US-ELI_LILLY_AND_COMPANY-US201109004101

PATIENT
  Age: 71 None
  Sex: Male
  Weight: 79.37 kg

DRUGS (9)
  1. FORTEO [Suspect]
     Indication: OSTEOPOROSIS
     Dosage: 20 UG, QD
     Route: 058
     Dates: start: 20110727
  2. MEGESTROL [Concomitant]
     Indication: APPETITE DISORDER
     Dosage: 4 MG, BID
  3. TUMS [Concomitant]
     Indication: MINERAL SUPPLEMENTATION
  4. BYSTOLIC [Concomitant]
     Dosage: 5 MG, UNK
  5. FUROSEMIDE [Concomitant]
     Dosage: 40 MG, UNK
  6. OMEPRAZOLE [Concomitant]
     Dosage: 20 MG, UNK
  7. SPIRONOLACTONE [Concomitant]
     Dosage: 25 MG, UNK
  8. LORTAB [Concomitant]
  9. FLEXERIL [Concomitant]

REACTIONS (8)
  - Death [Fatal]
  - Pelvic fracture [Unknown]
  - Fall [Unknown]
  - Dizziness [Unknown]
  - Balance disorder [Unknown]
  - Blood sodium decreased [Unknown]
  - Pain [Unknown]
  - Depressed mood [Unknown]
